FAERS Safety Report 12961986 (Version 2)
Quarter: 2017Q1

REPORT INFORMATION
  Report Type: Report from Study
  Country: AU (occurrence: AU)
  Receive Date: 20161121
  Receipt Date: 20170227
  Transmission Date: 20170428
  Serious: No
  Sender: FDA-Public Use
  Company Number: AU-CELGENEUS-AUS-2016111924

PATIENT
  Sex: Male

DRUGS (2)
  1. LEVAC [Concomitant]
     Indication: SYNOVITIS
     Route: 065
  2. OTEZLA [Suspect]
     Active Substance: APREMILAST
     Indication: PSORIATIC ARTHROPATHY
     Dosage: 60 MILLIGRAM
     Route: 048
     Dates: start: 201511

REACTIONS (1)
  - Therapeutic response decreased [Not Recovered/Not Resolved]
